FAERS Safety Report 9922132 (Version 1)
Quarter: 2014Q1

REPORT INFORMATION
  Report Type: Spontaneous
  Country: US (occurrence: None)
  Receive Date: 20140224
  Receipt Date: 20140224
  Transmission Date: 20141002
  Serious: No
  Sender: FDA-Public Use
  Company Number: None

PATIENT
  Age: 69 Year
  Sex: Male

DRUGS (2)
  1. HEMOFIL M [Suspect]
     Indication: FACTOR VIII DEFICIENCY
     Dosage: 1235, PM BLEEDING, IV
     Route: 042
     Dates: start: 20110126
  2. HEMOFIL M [Suspect]
     Indication: FACTOR VIII DEFICIENCY
     Dosage: 1235, PM BLEEDING, IV
     Route: 042
     Dates: start: 20110126

REACTIONS (1)
  - Rash [None]
